FAERS Safety Report 18920196 (Version 2)
Quarter: 2021Q1

REPORT INFORMATION
  Report Type: Spontaneous
  Country: GB (occurrence: GB)
  Receive Date: 20210222
  Receipt Date: 20210302
  Transmission Date: 20210420
  Serious: Yes (Hospitalization, Other)
  Sender: FDA-Public Use
  Company Number: GB-AUROBINDO-AUR-APL-2021-006618

PATIENT
  Age: 16 Year
  Sex: Male
  Weight: 50 kg

DRUGS (2)
  1. PARACETAMOL [Suspect]
     Active Substance: ACETAMINOPHEN
     Indication: MYALGIA
  2. PARACETAMOL [Suspect]
     Active Substance: ACETAMINOPHEN
     Indication: BECKER^S MUSCULAR DYSTROPHY
     Dosage: 1 GRAM AS NEEDED, UP TO FOUR TIMES A DAY (HE RECEIVED EIGHT GRAMS OF PARACETAMOL OVER FOUR DAYS IN L
     Route: 048

REACTIONS (1)
  - Drug-induced liver injury [Recovered/Resolved]
